FAERS Safety Report 6341135-6 (Version None)
Quarter: 2009Q3

REPORT INFORMATION
  Report Type: 
  Country: None (occurrence: None)
  Receive Date: 20090904
  Receipt Date: 20090203
  Transmission Date: 20100115
  Serious: No
  Sender: FDA-Public Use
  Company Number: A0766604A

PATIENT
  Age: 66 Year
  Sex: Female

DRUGS (2)
  1. REQUIP [Suspect]
     Indication: RESTLESS LEGS SYNDROME
     Dosage: 1MG AT NIGHT
     Route: 048
     Dates: start: 20081001
  2. NO CONCURRENT MEDICATION [Concomitant]

REACTIONS (3)
  - DRUG EFFECT DECREASED [None]
  - RESTLESS LEGS SYNDROME [None]
  - SOMNOLENCE [None]
